FAERS Safety Report 6370262-2 (Version None)
Quarter: 2009Q3

REPORT INFORMATION
  Report Type: 
  Country: None (occurrence: None)
  Receive Date: 20090918
  Receipt Date: 20090909
  Transmission Date: 20100115
  Serious: Yes (Disabling)
  Sender: FDA-Public Use
  Company Number: 375580

PATIENT
  Sex: Male

DRUGS (3)
  1. BUPIVACAINE HCL [Suspect]
     Indication: LOCAL ANAESTHESIA
     Dosage: ^CONTINOUS BASIS FOR UP TO 72 HOURS OR MORE^
     Dates: start: 20040702
  2. BUPIVACAINE HCL [Suspect]
     Indication: LOCAL ANAESTHESIA
     Dosage: ^CONTINOUS BASIS FOR UP TO 72 HOURS OR MORE^
     Dates: start: 20050118
  3. LIDOCAINE HCL [Suspect]
     Indication: LOCAL ANAESTHESIA
     Dosage: ^CONTINOUS BASIS FOR UP TO 72 HOURS OR MORE^
     Dates: start: 20040309

REACTIONS (5)
  - CHONDROPATHY [None]
  - JOINT RANGE OF MOTION DECREASED [None]
  - MULTIPLE INJURIES [None]
  - PAIN [None]
  - UNEVALUABLE EVENT [None]
